FAERS Safety Report 6632156-4 (Version None)
Quarter: 2010Q1

REPORT INFORMATION
  Report Type: 
  Country: None (occurrence: None)
  Receive Date: 20100312
  Receipt Date: 20100305
  Transmission Date: 20100710
  Serious: Yes (Hospitalization, Other)
  Sender: FDA-Public Use
  Company Number: US-RB-008836-07

PATIENT
  Sex: Female

DRUGS (4)
  1. SUBUTEX [Suspect]
     Dosage: PATIENT WAS ON SUBUTEX 22 MG DAILY IN ??-JAN-2008, ALSO ON UNKNOWN EXACT DOSES
     Route: 060
     Dates: start: 20071001, end: 20080406
  2. SUBOXONE [Suspect]
     Dosage: UNIT DOSE KNOWN, FREQUENCY AND DAILY DOSE UNKNOWN
     Route: 060
     Dates: start: 20070101, end: 20071001
  3. SUBOXONE [Suspect]
     Route: 060
     Dates: start: 20080101
  4. TRAZODONE HCL [Concomitant]
     Indication: INSOMNIA
     Dosage: DOSE 50-75 MG QD PRN
     Route: 048

REACTIONS (6)
  - BLINDNESS [None]
  - BLOOD PRESSURE INCREASED [None]
  - CEREBROVASCULAR ACCIDENT [None]
  - DRUG EXPOSURE DURING PREGNANCY [None]
  - GRAND MAL CONVULSION [None]
  - VOMITING [None]
